FAERS Safety Report 4463256-5 (Version None)
Quarter: 2004Q3

REPORT INFORMATION
  Report Type: 
  Country: None (occurrence: None)
  Receive Date: 20040930
  Receipt Date: 20040913
  Transmission Date: 20050211
  Serious: Yes (Other)
  Sender: FDA-Public Use
  Company Number: ES-GLAXOSMITHKLINE-B0345892A

PATIENT
  Age: 11 Year
  Sex: Female

DRUGS (3)
  1. AGENERASE [Suspect]
     Indication: HIV INFECTION
     Route: 065
     Dates: start: 19990101, end: 20021101
  2. DIDANOSINE [Concomitant]
     Indication: HIV INFECTION
  3. LAMIVUDINE [Concomitant]
     Indication: HIV INFECTION

REACTIONS (4)
  - ACANTHOSIS NIGRICANS [None]
  - HYPERGLYCAEMIA [None]
  - INSULIN RESISTANCE [None]
  - LIPODYSTROPHY ACQUIRED [None]
